FAERS Safety Report 6354918-3 (Version None)
Quarter: 2009Q3

REPORT INFORMATION
  Report Type: 
  Country: None (occurrence: None)
  Receive Date: 20090914
  Receipt Date: 20090903
  Transmission Date: 20100115
  Serious: Yes (Hospitalization)
  Sender: FDA-Public Use
  Company Number: BR-AVENTIS-200920069GDDC

PATIENT
  Age: 77 Year
  Sex: Male
  Weight: 54 kg

DRUGS (10)
  1. LANTUS [Suspect]
     Route: 058
  2. OPTIPEN (INSULIN PUMP) [Suspect]
  3. ALDACTONE [Concomitant]
     Route: 048
  4. HIPERNOLOL [Concomitant]
     Route: 048
  5. PANTOZOL                           /01263202/ [Concomitant]
     Route: 048
  6. MESALAZINE [Concomitant]
     Indication: COLITIS
     Route: 048
  7. NORIPURUM FOLICO [Concomitant]
     Dosage: DOSE QUANTITY: 1
     Route: 048
  8. VIT B COMPLEX [Concomitant]
     Indication: VITAMIN SUPPLEMENTATION
     Dosage: DOSE QUANTITY: 2
     Route: 048
  9. UNKNOWN DRUG (SIGMALAC) [Concomitant]
     Dosage: DOSE: 10 ML Q12H
     Route: 048
  10. CIPROFLAXACIN [Concomitant]
     Dosage: DOSE QUANTITY: 1
     Route: 048

REACTIONS (11)
  - ABDOMINAL DISTENSION [None]
  - BLOOD GLUCOSE DECREASED [None]
  - CONDITION AGGRAVATED [None]
  - HEPATIC CIRRHOSIS [None]
  - HEPATITIS B [None]
  - HYPERHIDROSIS [None]
  - INCOHERENT [None]
  - MOVEMENT DISORDER [None]
  - OEDEMA PERIPHERAL [None]
  - SPEECH DISORDER [None]
  - VARICES OESOPHAGEAL [None]
